FAERS Safety Report 9916521 (Version 1)
Quarter: 2014Q1

REPORT INFORMATION
  Report Type: Spontaneous
  Country: IT (occurrence: None)
  Receive Date: 20140219
  Receipt Date: 20140219
  Transmission Date: 20141002
  Serious: Yes (Other)
  Sender: FDA-Public Use
  Company Number: 2184092

PATIENT
  Age: 68 Year
  Sex: Female
  Weight: 92 kg

DRUGS (1)
  1. DOCETAXEL [Suspect]
     Indication: BREAST CANCER
     Dosage: 160 MG MILLIGRAM(S), CYCLICAL, INTRAVENOUS
     Route: 042
     Dates: start: 20140110

REACTIONS (8)
  - Gastrointestinal toxicity [None]
  - Asthenia [None]
  - Condition aggravated [None]
  - Skin exfoliation [None]
  - Pain [None]
  - Hypokalaemia [None]
  - Neutropenia [None]
  - Erythema [None]
